FAERS Safety Report 6700458-9 (Version None)
Quarter: 2010Q2

REPORT INFORMATION
  Report Type: 
  Country: None (occurrence: None)
  Receive Date: 20100428
  Receipt Date: 20100423
  Transmission Date: 20101027
  Serious: No
  Sender: FDA-Public Use
  Company Number: CN-ASTRAZENECA-2010SE12553

PATIENT
  Sex: Male

DRUGS (3)
  1. SEROQUEL [Suspect]
     Indication: SCHIZOPHRENIA
     Route: 048
     Dates: start: 20071213, end: 20090723
  2. SEROQUEL [Suspect]
     Route: 048
     Dates: start: 20090724, end: 20100220
  3. ABILIFY [Concomitant]
     Route: 065
     Dates: start: 20090724

REACTIONS (1)
  - WHITE BLOOD CELL COUNT DECREASED [None]
